FAERS Safety Report 13014936 (Version 1)
Quarter: 2016Q4

REPORT INFORMATION
  Report Type: Spontaneous
  Country: US (occurrence: US)
  Receive Date: 20161210
  Receipt Date: 20161210
  Transmission Date: 20170207
  Serious: No
  Sender: FDA-Public Use
  Company Number: US-ASTRAZENECA-2016SF19714

PATIENT
  Sex: Female

DRUGS (2)
  1. SEIZURE MEDICATION [Suspect]
     Active Substance: UNSPECIFIED INGREDIENT
     Indication: SEIZURE
     Dosage: NON AZ PRODUCT
     Route: 065
  2. NEXIUM [Suspect]
     Active Substance: ESOMEPRAZOLE MAGNESIUM
     Route: 048

REACTIONS (3)
  - Activities of daily living impaired [Unknown]
  - Diarrhoea [Unknown]
  - Feeling drunk [Unknown]
